FAERS Safety Report 26210755 (Version 1)
Quarter: 2025Q4

REPORT INFORMATION
  Report Type: Spontaneous
  Country: EU (occurrence: EU)
  Receive Date: 20251230
  Receipt Date: 20251230
  Transmission Date: 20260118
  Serious: Yes (Hospitalization, Other)
  Sender: ALEXION PHARMACEUTICALS
  Company Number: EU-AMGEN-GRCSP2025236261

PATIENT
  Age: 25 Year
  Sex: Female

DRUGS (18)
  1. SOLIRIS [Suspect]
     Active Substance: ECULIZUMAB
     Indication: Paroxysmal nocturnal haemoglobinuria
     Dosage: 600 MILLIGRAM, QWK X 4 WEEKS
     Route: 065
  2. SOLIRIS [Suspect]
     Active Substance: ECULIZUMAB
     Indication: Aplastic anaemia
     Dosage: 900 MILLIGRAM, Q2WK
     Route: 065
  3. FILGRASTIM [Suspect]
     Active Substance: FILGRASTIM
     Dosage: 30 MICROGRAM, QD
     Route: 065
  4. HAEMOPHILUS INFLUENZA BACTERIA [Concomitant]
     Indication: Paroxysmal nocturnal haemoglobinuria
     Route: 065
  5. HAEMOPHILUS INFLUENZA BACTERIA [Concomitant]
     Indication: Aplastic anaemia
  6. IRON [Concomitant]
     Active Substance: IRON
     Indication: Mineral supplementation
     Dosage: UNK
     Route: 065
  7. FOLIC ACID [Concomitant]
     Active Substance: FOLIC ACID
     Indication: Vitamin supplementation
     Dosage: UNK
     Route: 065
  8. PROPOFOL [Concomitant]
     Active Substance: PROPOFOL
     Indication: Induction of anaesthesia
     Dosage: 2.5 MILLIGRAM/KILOGRAM
     Route: 065
  9. ROCURONIUM [Concomitant]
     Active Substance: ROCURONIUM BROMIDE
     Indication: Induction of anaesthesia
     Dosage: 0.9 MILLIGRAM/KILOGRAM
     Route: 065
  10. TRANEXAMIC ACID [Concomitant]
     Active Substance: TRANEXAMIC ACID
     Dosage: 1 GRAM
     Route: 065
  11. FIBRINOGEN [Concomitant]
     Active Substance: FIBRINOGEN HUMAN
     Dosage: UNK
     Route: 065
  12. CARBETOCIN [Concomitant]
     Active Substance: CARBETOCIN
     Indication: Prophylaxis
     Dosage: 100 MICROGRAM
  13. ERGONOVINE MALEATE [Concomitant]
     Active Substance: ERGONOVINE MALEATE
     Indication: Prophylaxis
     Dosage: 200 MICROGRAM
  14. FENTANYL [Concomitant]
     Active Substance: FENTANYL
     Indication: Analgesic therapy
     Dosage: 250 MICROGRAM
     Route: 065
  15. MORPHINE [Concomitant]
     Active Substance: MORPHINE
     Indication: Analgesic therapy
     Dosage: 8 MILLIGRAM
     Route: 065
  16. ACETAMINOPHEN [Concomitant]
     Active Substance: ACETAMINOPHEN
     Indication: Analgesic therapy
     Dosage: 1 GRAM
     Route: 065
  17. DEXKETOPROFEN [Concomitant]
     Active Substance: DEXKETOPROFEN
     Indication: Analgesic therapy
     Dosage: 50 MILLIGRAM
     Route: 065
  18. ENOXAPARIN [Concomitant]
     Active Substance: ENOXAPARIN
     Dosage: 40 MILLIGRAM, QD

REACTIONS (6)
  - Premature delivery [Unknown]
  - Maternal exposure during pregnancy [Unknown]
  - Blood albumin decreased [Unknown]
  - Protein total decreased [Unknown]
  - Prothrombin time shortened [Unknown]
  - Drug ineffective [Unknown]
